FAERS Safety Report 6549454-5 (Version None)
Quarter: 2010Q1

REPORT INFORMATION
  Report Type: 
  Country: None (occurrence: None)
  Receive Date: 20100125
  Receipt Date: 20100118
  Transmission Date: 20100710
  Serious: Yes (Other)
  Sender: FDA-Public Use
  Company Number: US-PURDUE-USA-2010-0041809

PATIENT
  Sex: Female

DRUGS (1)
  1. SENOKOT [Suspect]
     Indication: CONSTIPATION
     Dosage: 2 TABLET, NOCTE
     Route: 048
     Dates: start: 20091229, end: 20100103

REACTIONS (4)
  - ABDOMINAL PAIN [None]
  - PRURITUS GENERALISED [None]
  - RASH [None]
  - URTICARIA [None]
